FAERS Safety Report 7008674-6 (Version None)
Quarter: 2010Q3

REPORT INFORMATION
  Report Type: 
  Country: None (occurrence: None)
  Receive Date: 20100921
  Receipt Date: 20100901
  Transmission Date: 20110219
  Serious: Yes (Other)
  Sender: FDA-Public Use
  Company Number: APP201000720

PATIENT
  Age: 39 Year
  Sex: Male

DRUGS (10)
  1. VINBLASTINE SULFATE [Suspect]
     Indication: HODGKIN'S DISEASE
     Dosage: CYCLES 1-5
  2. DOXORUBICIN HYDROCHLORIDE [Suspect]
     Indication: HODGKIN'S DISEASE
     Dosage: 6 CYCLES TOTAL
  3. BLEOMYCIN FOR INJECTION, UPS (BLEOMYCIN) [Suspect]
     Indication: HODGKIN'S DISEASE
     Dosage: 6 CYCLES TOTAL
  4. DACARBAZINE [Suspect]
     Indication: HODGKIN'S DISEASE
     Dosage: 6 CYCLES TOTAL
  5. TENOFOVIR DISOPROXIL FUMARATE [Concomitant]
  6. EMTRICITABINE (EMTRICIABINE) [Concomitant]
  7. LOPINAVIR (LOPINAVIR) [Concomitant]
  8. RITONAVIR [Concomitant]
  9. TRIMETHOPRAM (TRIMETHOPRAM) [Concomitant]
  10. GRANULOCYTE COLONY-STIMULATING FACTOR (GRANULOCYTE COLONY STIMULATING [Concomitant]

REACTIONS (5)
  - ACTIVITIES OF DAILY LIVING IMPAIRED [None]
  - FEBRILE NEUTROPENIA [None]
  - NEURALGIA [None]
  - NEUTROPENIA [None]
  - SENSORY LOSS [None]
